FAERS Safety Report 6899452-7 (Version None)
Quarter: 2010Q3

REPORT INFORMATION
  Report Type: 
  Country: None (occurrence: None)
  Receive Date: 20100803
  Receipt Date: 20091130
  Transmission Date: 20110219
  Serious: No
  Sender: FDA-Public Use
  Company Number: US-PFIZER INC-2007020847

PATIENT
  Sex: Male
  Weight: 68.9 kg

DRUGS (17)
  1. LYRICA [Suspect]
     Indication: PAIN IN EXTREMITY
     Dosage: 75 MG, 1X/DAY
     Dates: start: 20070307
  2. NEURONTIN [Suspect]
     Indication: PAIN IN EXTREMITY
  3. NORTAB [Concomitant]
     Dosage: UNK
  4. FELODIPINE [Concomitant]
     Dosage: UNK
  5. KLONOPIN [Concomitant]
     Dosage: UNK
  6. DIAZEPAM [Concomitant]
     Dosage: UNK
  7. XANAX [Concomitant]
     Dosage: UNK
  8. ZOLOFT [Concomitant]
     Dosage: UNK
  9. VYTORIN [Concomitant]
     Dosage: UNK
  10. ACETYLSALICYLIC ACID [Concomitant]
     Dosage: UNK
  11. VITAMIN E [Concomitant]
     Dosage: UNK
  12. FOLIC ACID [Concomitant]
     Dosage: UNK
  13. CYMBALTA [Concomitant]
     Dosage: UNK
  14. CORTISONE [Concomitant]
     Dosage: UNK
  15. LORTAB [Concomitant]
     Dosage: UNK
  16. MORPHINE [Concomitant]
     Dosage: UNK
  17. KLONOPIN [Concomitant]
     Dosage: UNK

REACTIONS (5)
  - DIZZINESS [None]
  - FATIGUE [None]
  - GAIT DISTURBANCE [None]
  - INTENTION TREMOR [None]
  - SOMNOLENCE [None]
